FAERS Safety Report 19815854 (Version 2)
Quarter: 2021Q3

REPORT INFORMATION
  Report Type: Spontaneous
  Country: CH (occurrence: CH)
  Receive Date: 20210910
  Receipt Date: 20210920
  Transmission Date: 20211014
  Serious: Yes (Death, Other)
  Sender: FDA-Public Use
  Company Number: CH-TEVA-2021-CH-1951538

PATIENT
  Age: 83 Year
  Sex: Female

DRUGS (2)
  1. BENDAMUSTINE HYDROCHLORIDE. [Suspect]
     Active Substance: BENDAMUSTINE HYDROCHLORIDE
     Indication: CHRONIC LYMPHOCYTIC LEUKAEMIA
  2. BENDAMUSTINE HYDROCHLORIDE. [Suspect]
     Active Substance: BENDAMUSTINE HYDROCHLORIDE
     Indication: ANGIOIMMUNOBLASTIC T-CELL LYMPHOMA
     Route: 042
     Dates: start: 201803

REACTIONS (5)
  - Epstein-Barr virus infection [Unknown]
  - Acute myeloid leukaemia [Unknown]
  - Actinomycosis [Unknown]
  - Product use in unapproved indication [Unknown]
  - Lymphocytic infiltration [Unknown]

NARRATIVE: CASE EVENT DATE: 201803
